FAERS Safety Report 7769321-9 (Version None)
Quarter: 2011Q3

REPORT INFORMATION
  Report Type: 
  Country: None (occurrence: None)
  Receive Date: 20110922
  Receipt Date: 20110914
  Transmission Date: 20111222
  Serious: Yes (Hospitalization, Other)
  Sender: FDA-Public Use
  Company Number: US-ROCHE-799057

PATIENT
  Sex: Female
  Weight: 90.7 kg

DRUGS (8)
  1. BEVACIZUMAB [Suspect]
     Dosage: ROUTE: IVPB  DOSE:1410 MG
     Route: 042
     Dates: start: 20110309
  2. TOPOTECAN [Suspect]
     Route: 065
     Dates: start: 20110309
  3. AMITRIPTYLINE HCL [Concomitant]
     Route: 048
  4. CISPLATIN [Suspect]
     Dosage: ROUTE IV PB
     Route: 042
     Dates: start: 20110309
  5. LISINOPRIL [Concomitant]
     Route: 048
  6. NEUPOGEN [Concomitant]
     Dosage: 3 ADDITIONAL DOSE.
  7. METFORMIN [Concomitant]
  8. ACTOS [Concomitant]
     Route: 048

REACTIONS (11)
  - WHITE BLOOD CELL COUNT [None]
  - PLATELET COUNT [None]
  - NEUTROPENIA [None]
  - HYPERGLYCAEMIA [None]
  - CONJUNCTIVITIS INFECTIVE [None]
  - HYPERTENSION [None]
  - HAEMOGLOBIN [None]
  - NEUTROPHIL COUNT [None]
  - BLOOD CREATININE [None]
  - HYPOMAGNESAEMIA [None]
  - THROMBOCYTOPENIA [None]
